FAERS Safety Report 5508496-9 (Version None)
Quarter: 2007Q4

REPORT INFORMATION
  Report Type: 
  Country: None (occurrence: None)
  Receive Date: 20071105
  Receipt Date: 20071031
  Transmission Date: 20080405
  Serious: Yes (Death, Hospitalization)
  Sender: FDA-Public Use
  Company Number: 2007SP020459

PATIENT
  Age: 79 Year
  Sex: Male
  Weight: 69.8539 kg

DRUGS (4)
  1. TEMODAR [Suspect]
     Indication: METASTATIC MALIGNANT MELANOMA
     Dosage: 300 MG; QD; PO
     Route: 048
     Dates: start: 20070829, end: 20070902
  2. THALIMIDE [Suspect]
     Indication: METASTATIC MALIGNANT MELANOMA
  3. TAGAMET [Concomitant]
  4. MIRALAX [Concomitant]

REACTIONS (7)
  - ACUTE RESPIRATORY DISTRESS SYNDROME [None]
  - DYSPNOEA [None]
  - NEUTROPHIL COUNT ABNORMAL [None]
  - ORAL HERPES [None]
  - PNEUMONIA MYCOPLASMAL [None]
  - PYREXIA [None]
  - RESPIRATORY FAILURE [None]
